FAERS Safety Report 9102962 (Version 2)
Quarter: 2013Q1

REPORT INFORMATION
  Report Type: Spontaneous
  Country: JP (occurrence: JP)
  Receive Date: 20130219
  Receipt Date: 20130311
  Transmission Date: 20140127
  Serious: Yes (Death, Hospitalization, Other)
  Sender: FDA-Public Use
  Company Number: JP-PFIZER INC-2013060641

PATIENT
  Age: 65 Year
  Sex: Female

DRUGS (1)
  1. CORTRIL [Suspect]
     Dosage: 10 MG, 1X/DAY
     Route: 048

REACTIONS (3)
  - Death [Fatal]
  - Haematemesis [Unknown]
  - Renal failure chronic [Unknown]
